FAERS Safety Report 9465945 (Version 1)
Quarter: 2013Q3

REPORT INFORMATION
  Report Type: Spontaneous
  Country: US (occurrence: US)
  Receive Date: 20130820
  Receipt Date: 20130820
  Transmission Date: 20140515
  Serious: Yes (Other)
  Sender: FDA-Public Use
  Company Number: US-TEVA-426902USA

PATIENT
  Sex: Male

DRUGS (1)
  1. QVAR [Suspect]
     Indication: ASTHMA

REACTIONS (1)
  - Cushing^s syndrome [Unknown]
